FAERS Safety Report 16961220 (Version 1)
Quarter: 2019Q4

REPORT INFORMATION
  Report Type: Report from Study
  Country: CO (occurrence: CO)
  Receive Date: 20191025
  Receipt Date: 20191025
  Transmission Date: 20200122
  Serious: Yes (Hospitalization)
  Sender: FDA-Public Use
  Company Number: CO-ASTELLAS-2019US042122

PATIENT
  Age: 61 Year
  Sex: Male

DRUGS (7)
  1. PRAZOSIN. [Concomitant]
     Active Substance: PRAZOSIN
     Indication: PRODUCT USED FOR UNKNOWN INDICATION
     Dosage: UNK UNK, UNKNOWN FREQ.
     Route: 048
  2. NIFEDIPINE. [Concomitant]
     Active Substance: NIFEDIPINE
     Indication: PRODUCT USED FOR UNKNOWN INDICATION
     Dosage: UNK UNK, UNKNOWN FREQ.
     Route: 048
  3. TACROLIMUS. [Suspect]
     Active Substance: TACROLIMUS
     Indication: LIVER TRANSPLANT
     Dosage: 3 MG, EVERY 12 HOURS (6 CAPSULE OF 1MG)
     Route: 048
     Dates: start: 20181110, end: 201908
  4. TACROLIMUS. [Suspect]
     Active Substance: TACROLIMUS
     Route: 048
     Dates: start: 201908
  5. PREDNISOLONE. [Concomitant]
     Active Substance: PREDNISOLONE
     Indication: PRODUCT USED FOR UNKNOWN INDICATION
     Dosage: UNK UNK, UNKNOWN FREQ.
     Route: 048
  6. TACROLIMUS. [Suspect]
     Active Substance: TACROLIMUS
     Indication: LIVER TRANSPLANT
     Dosage: 4 MG, ONCE DAILY (4 CAPSULES OF 1MG)
     Route: 048
     Dates: start: 201908, end: 201908
  7. AZATHIOPRINE. [Concomitant]
     Active Substance: AZATHIOPRINE
     Indication: PRODUCT USED FOR UNKNOWN INDICATION
     Dosage: UNK UNK, UNKNOWN FREQ.
     Route: 048

REACTIONS (2)
  - Immunosuppressant drug level decreased [Recovering/Resolving]
  - Tongue ulceration [Recovered/Resolved]

NARRATIVE: CASE EVENT DATE: 201906
